FAERS Safety Report 21948761 (Version 1)
Quarter: 2023Q1

REPORT INFORMATION
  Report Type: Spontaneous
  Country: IT (occurrence: IT)
  Receive Date: 20230203
  Receipt Date: 20230203
  Transmission Date: 20230418
  Serious: Yes (Hospitalization, Other)
  Sender: FDA-Public Use
  Company Number: IT-STERISCIENCE B.V.-2023-ST-000346

PATIENT
  Age: 70 Year
  Sex: Male

DRUGS (7)
  1. PIPERACILLIN SODIUM\TAZOBACTAM SODIUM [Suspect]
     Active Substance: PIPERACILLIN SODIUM\TAZOBACTAM SODIUM
     Indication: Antibiotic therapy
     Dosage: 4G/500MG THREE TIMES A DAY, TID
     Dates: start: 2020, end: 2020
  2. LEVOFLOXACIN [Suspect]
     Active Substance: LEVOFLOXACIN
     Indication: Antibiotic therapy
     Dosage: 750 MILLIGRAM, QD
     Dates: start: 2020, end: 2020
  3. DOXORUBICIN [Suspect]
     Active Substance: DOXORUBICIN
     Indication: Dedifferentiated liposarcoma
     Dosage: FIRST CYCLE 75 MILLILITRE PER SQUARE METRE
     Dates: start: 2020
  4. DOXORUBICIN [Suspect]
     Active Substance: DOXORUBICIN
     Indication: Liposarcoma metastatic
     Dosage: SECOND CYCLE 75 MILLILITRE PER SQUARE METRE
     Dates: start: 2020
  5. DOXORUBICIN [Suspect]
     Active Substance: DOXORUBICIN
     Dosage: THIRD CYCLE 75 MILLILITRE PER SQUARE METRE
     Dates: start: 2020
  6. ACETAMINOPHEN [Concomitant]
     Active Substance: ACETAMINOPHEN
     Indication: Back pain
     Dosage: UNK
     Dates: start: 2020
  7. CODEINE [Concomitant]
     Active Substance: CODEINE
     Indication: Back pain
     Dosage: UNK
     Dates: start: 2020

REACTIONS (1)
  - Pneumothorax [None]

NARRATIVE: CASE EVENT DATE: 20200101
